FAERS Safety Report 7060482-6 (Version None)
Quarter: 2010Q4

REPORT INFORMATION
  Report Type: 
  Country: None (occurrence: None)
  Receive Date: 20101025
  Receipt Date: 20101025
  Transmission Date: 20110411
  Serious: Yes (Death)
  Sender: FDA-Public Use
  Company Number: DE-EISAI INC.-E2020-07753-CLI-DE

PATIENT
  Age: 84 Year
  Sex: Male
  Weight: 55 kg

DRUGS (8)
  1. ARICEPT [Suspect]
     Route: 048
     Dates: start: 20100105, end: 20100805
  2. METOPROLOL [Suspect]
     Route: 048
     Dates: start: 20080101, end: 20100805
  3. MIRTAZAPINE [Concomitant]
     Indication: DEPRESSION
     Route: 048
     Dates: start: 20100325, end: 20100805
  4. ASPIRIN [Concomitant]
     Route: 048
     Dates: start: 20080101, end: 20100805
  5. FUROSEMIDE [Concomitant]
     Indication: HYPERTENSION
     Route: 048
     Dates: start: 20080101, end: 20100805
  6. OMEPRAZOLE [Concomitant]
     Route: 048
     Dates: start: 20080101, end: 20100805
  7. METAMIZOLE SODIUM [Concomitant]
     Indication: PAIN
     Route: 048
     Dates: start: 20080101, end: 20100805
  8. TREVILOR RETARD [Concomitant]
     Indication: DEPRESSION
     Route: 048
     Dates: start: 20090818, end: 20100805

REACTIONS (1)
  - SUDDEN CARDIAC DEATH [None]
